FAERS Safety Report 16791674 (Version 1)
Quarter: 2019Q4

REPORT INFORMATION
  Report Type: Spontaneous
  Country: US (occurrence: US)
  Receive Date: 20190910
  Receipt Date: 20190910
  Transmission Date: 20200122
  Serious: Yes (Disabling)
  Sender: FDA-Public Use
  Company Number: None

PATIENT
  Age: 31 Year
  Sex: Female
  Weight: 48.6 kg

DRUGS (3)
  1. ZOLOFT [Suspect]
     Active Substance: SERTRALINE HYDROCHLORIDE
     Indication: ANXIETY
  2. ALRPRAZOLAM [Concomitant]
  3. CLONAZEPAM. [Concomitant]
     Active Substance: CLONAZEPAM

REACTIONS (13)
  - Syncope [None]
  - Dizziness [None]
  - Muscle spasms [None]
  - Anxiety [None]
  - Depressed level of consciousness [None]
  - Weight decreased [None]
  - Cold sweat [None]
  - Persistent postural-perceptual dizziness [None]
  - Tremor [None]
  - Dermatitis [None]
  - Product substitution issue [None]
  - Hypotension [None]
  - Pyrexia [None]

NARRATIVE: CASE EVENT DATE: 20190416
